FAERS Safety Report 14569288 (Version 1)
Quarter: 2018Q1

REPORT INFORMATION
  Report Type: Spontaneous
  Country: US (occurrence: US)
  Receive Date: 20180223
  Receipt Date: 20180223
  Transmission Date: 20180509
  Serious: Yes (Other)
  Sender: FDA-Public Use
  Company Number: US-JNJFOC-20180227786

PATIENT

DRUGS (7)
  1. CARFILZOMIB [Suspect]
     Active Substance: CARFILZOMIB
     Indication: PLASMA CELL MYELOMA
  2. DEXAMETHASONE. [Suspect]
     Active Substance: DEXAMETHASONE
     Indication: PLASMA CELL MYELOMA
  3. NIVOLUMAB [Suspect]
     Active Substance: NIVOLUMAB
     Indication: PLASMA CELL MYELOMA
     Dosage: MEDIAN 2 CYCLES (RANGE 1 - 9) WERE APPLIED EVERY 2 WEEKS (N=6) OR 3 WEEKS (N=2))
  4. LENALIDOMIDE [Suspect]
     Active Substance: LENALIDOMIDE
     Indication: PLASMA CELL MYELOMA
  5. POMALIDOMIDE [Suspect]
     Active Substance: POMALIDOMIDE
     Indication: PLASMA CELL MYELOMA
  6. IPILIMUMAB [Suspect]
     Active Substance: IPILIMUMAB
     Indication: PLASMA CELL MYELOMA
  7. DARATUMUMAB [Suspect]
     Active Substance: DARATUMUMAB
     Indication: PLASMA CELL MYELOMA
     Route: 042

REACTIONS (11)
  - Infection [Unknown]
  - Arthralgia [Unknown]
  - Orthostatic intolerance [Unknown]
  - Pneumonitis [Unknown]
  - Asthenia [Unknown]
  - Sinusitis [Unknown]
  - Bone lesion [Unknown]
  - Pericarditis [Unknown]
  - Colitis [Unknown]
  - Disease progression [Unknown]
  - Bone pain [Unknown]
